FAERS Safety Report 5388712-7 (Version None)
Quarter: 2007Q3

REPORT INFORMATION
  Report Type: 
  Country: None (occurrence: None)
  Receive Date: 20070716
  Receipt Date: 20070713
  Transmission Date: 20080115
  Serious: Yes (Other)
  Sender: FDA-Public Use
  Company Number: IT-MERCK-0707ITA00013

PATIENT
  Age: 68 Year
  Sex: Female

DRUGS (3)
  1. VYTORIN [Suspect]
     Indication: HYPERCHOLESTEROLAEMIA
     Route: 048
     Dates: start: 20070528, end: 20070528
  2. VYTORIN [Suspect]
     Route: 048
     Dates: start: 20070616, end: 20070616
  3. QUARK [Concomitant]
     Route: 048

REACTIONS (4)
  - HYPERHIDROSIS [None]
  - SYNCOPE [None]
  - THROAT TIGHTNESS [None]
  - VOMITING [None]
